FAERS Safety Report 12196943 (Version 3)
Quarter: 2016Q3

REPORT INFORMATION
  Report Type: Spontaneous
  Country: US (occurrence: US)
  Receive Date: 20160321
  Receipt Date: 20160726
  Transmission Date: 20161109
  Serious: No
  Sender: FDA-Public Use
  Company Number: US-ASTRAZENECA-2016SE30181

PATIENT
  Age: 592 Month
  Sex: Female

DRUGS (2)
  1. BRILINTA [Suspect]
     Active Substance: TICAGRELOR
     Indication: STENT PLACEMENT
     Route: 048
     Dates: start: 201003
  2. BRILINTA [Suspect]
     Active Substance: TICAGRELOR
     Indication: ACUTE CORONARY SYNDROME
     Route: 048
     Dates: start: 201003

REACTIONS (7)
  - Stress [Unknown]
  - Epistaxis [Unknown]
  - Atrial flutter [Unknown]
  - Chest pain [Unknown]
  - Dyspnoea [Unknown]
  - Anxiety [Unknown]
  - Haematochezia [Unknown]

NARRATIVE: CASE EVENT DATE: 201003
